FAERS Safety Report 7178237-0 (Version None)
Quarter: 2010Q4

REPORT INFORMATION
  Report Type: 
  Country: None (occurrence: None)
  Receive Date: 20101220
  Receipt Date: 20101208
  Transmission Date: 20110411
  Serious: Yes (Hospitalization)
  Sender: FDA-Public Use
  Company Number: TR-MEDIMMUNE-MEDI-0011976

PATIENT
  Sex: Female
  Weight: 4 kg

DRUGS (2)
  1. SYNAGIS [Suspect]
     Indication: RESPIRATORY DISTRESS
     Route: 030
     Dates: start: 20101025, end: 20101125
  2. LACTULOSE [Concomitant]
     Route: 048

REACTIONS (3)
  - BRONCHITIS [None]
  - COUGH [None]
  - PRODUCTIVE COUGH [None]
